FAERS Safety Report 17616240 (Version 1)
Quarter: 2020Q1

REPORT INFORMATION
  Report Type: Spontaneous
  Country: US (occurrence: US)
  Receive Date: 20200331
  Receipt Date: 20200331
  Transmission Date: 20200409
  Serious: No
  Sender: FDA-Public Use
  Company Number: None

PATIENT
  Age: 52 Year
  Sex: Male

DRUGS (1)
  1. GAMUNEX-C [Suspect]
     Active Substance: HUMAN IMMUNOGLOBULIN G
     Dosage: ?          OTHER STRENGTH:1GM/10ML;?
     Route: 042
     Dates: start: 202003

REACTIONS (2)
  - Off label use [None]
  - Guillain-Barre syndrome [None]

NARRATIVE: CASE EVENT DATE: 20200331
